FAERS Safety Report 19201300 (Version 2)
Quarter: 2021Q2

REPORT INFORMATION
  Report Type: Report from Study
  Country: None (occurrence: AR)
  Receive Date: 20210430
  Receipt Date: 20210623
  Transmission Date: 20210717
  Serious: Yes (Other)
  Sender: FDA-Public Use
  Company Number: AR-ABBVIE-21K-007-3854972-00

PATIENT
  Sex: Female

DRUGS (2)
  1. HUMIRA [Suspect]
     Active Substance: ADALIMUMAB
     Indication: RHEUMATOID ARTHRITIS
     Route: 058
     Dates: start: 20070626
  2. LEVOTHYROXINE. [Concomitant]
     Active Substance: LEVOTHYROXINE
     Indication: HYPOTHYROIDISM
     Route: 048
     Dates: start: 2019

REACTIONS (16)
  - Menopause [Unknown]
  - Thyroid disorder [Recovering/Resolving]
  - Herpes zoster [Recovered/Resolved]
  - Herpes zoster [Recovering/Resolving]
  - Erythema [Recovering/Resolving]
  - Gait disturbance [Unknown]
  - Arthritis [Unknown]
  - Arthralgia [Recovering/Resolving]
  - Nodule [Unknown]
  - Nodule [Unknown]
  - Medical device site joint infection [Recovered/Resolved]
  - Hypothyroidism [Unknown]
  - Amnesia [Unknown]
  - Arthropathy [Unknown]
  - Osteoporosis [Unknown]
  - Fall [Unknown]

NARRATIVE: CASE EVENT DATE: 2011
